FAERS Safety Report 7087770-1 (Version None)
Quarter: 2010Q4

REPORT INFORMATION
  Report Type: 
  Country: None (occurrence: None)
  Receive Date: 20101108
  Receipt Date: 20101029
  Transmission Date: 20110411
  Serious: Yes (Death, Life-Threatening, Hospitalization)
  Sender: FDA-Public Use
  Company Number: US-ELI_LILLY_AND_COMPANY-US201010004155

PATIENT
  Sex: Female
  Weight: 77.098 kg

DRUGS (16)
  1. HUMALOG MIX 50/50 [Suspect]
     Indication: TYPE 2 DIABETES MELLITUS
     Dosage: 45 U, EACH MORNING
     Route: 058
     Dates: start: 20061221, end: 20101015
  2. HUMALOG MIX 50/50 [Suspect]
     Dosage: 32 U, EACH EVENING
     Route: 058
     Dates: start: 20061221, end: 20101015
  3. DIOVAN [Concomitant]
     Dosage: UNK, UNK
  4. LASIX [Concomitant]
     Dosage: UNK, UNK
  5. HYDRALAZINE [Concomitant]
     Dosage: UNK, UNK
  6. LIPITOR [Concomitant]
     Dosage: UNK, UNK
  7. ATENOLOL [Concomitant]
     Dosage: UNK, UNK
  8. METOPROLOL [Concomitant]
     Dosage: UNK, UNK
  9. PLAVIX [Concomitant]
     Dosage: UNK, UNK
  10. ASPIRIN [Concomitant]
     Dosage: UNK, UNK
  11. IMDUR [Concomitant]
     Dosage: UNK, UNK
  12. PROTONIX [Concomitant]
     Dosage: UNK, UNK
  13. SINGULAIR [Concomitant]
  14. ADVAIR DISKUS 100/50 [Concomitant]
  15. CARDENE [Concomitant]
  16. PREDNISONE [Concomitant]

REACTIONS (2)
  - CARDIOPULMONARY FAILURE [None]
  - MYOCARDIAL INFARCTION [None]
